FAERS Safety Report 4927135-9 (Version None)
Quarter: 2006Q1

REPORT INFORMATION
  Report Type: 
  Country: None (occurrence: None)
  Receive Date: 20060228
  Receipt Date: 20060220
  Transmission Date: 20060701
  Serious: Yes (Hospitalization)
  Sender: FDA-Public Use
  Company Number: FR-JNJFOC-20060204545

PATIENT
  Age: 86 Year
  Sex: Female
  Weight: 44 kg

DRUGS (12)
  1. REMINYL [Suspect]
     Indication: DRUG USE FOR UNKNOWN INDICATION
     Route: 048
     Dates: start: 20041215, end: 20051115
  2. VASTEN [Suspect]
     Indication: DRUG USE FOR UNKNOWN INDICATION
     Route: 048
  3. ZOLOFT [Suspect]
     Indication: DRUG USE FOR UNKNOWN INDICATION
     Route: 048
  4. EVISTA [Suspect]
     Indication: DRUG USE FOR UNKNOWN INDICATION
  5. FLECAINIDE ACETATE [Concomitant]
     Route: 065
  6. KARDEGIC [Concomitant]
     Route: 065
  7. FORLAX [Concomitant]
     Route: 065
  8. JAMYLENE [Concomitant]
     Route: 065
  9. JAMYLENE [Concomitant]
     Route: 065
  10. OROCAL D3 [Concomitant]
     Route: 065
  11. OROCAL D3 [Concomitant]
     Route: 065
  12. SEREVENT [Concomitant]
     Route: 065

REACTIONS (1)
  - STATUS EPILEPTICUS [None]
